FAERS Safety Report 9030820 (Version 1)
Quarter: 2013Q1

REPORT INFORMATION
  Report Type: Spontaneous
  Country: JP (occurrence: JP)
  Receive Date: 20130123
  Receipt Date: 20130123
  Transmission Date: 20140127
  Serious: Yes (Other)
  Sender: FDA-Public Use
  Company Number: JP-ROCHE-1181349

PATIENT
  Age: 22 Year
  Sex: Female

DRUGS (6)
  1. TAMIFLU [Suspect]
     Indication: PRODUCT USED FOR UNKNOWN INDICATION
     Dosage: DOSAGE IS UNCERTAIN.
     Route: 048
  2. CLARITHROMYCIN [Concomitant]
     Dosage: DOSAGE IS UNCERTAIN.
     Route: 065
  3. MARZULENE [Concomitant]
     Dosage: DOSAGE IS UNCERTAIN.
     Route: 065
  4. HUSCODE [Concomitant]
     Dosage: DOSAGE IS UNCERTAIN.
     Route: 065
  5. CALONAL [Concomitant]
     Dosage: DOSAGE IS UNCERTAIN.
     Route: 065
  6. LEVOFLOXACIN HYDRATE [Concomitant]
     Dosage: DOSAGE IS UNCERTAIN.
     Route: 065

REACTIONS (1)
  - Convulsion [Unknown]
